FAERS Safety Report 9064764 (Version 1)
Quarter: 2013Q1

REPORT INFORMATION
  Report Type: Spontaneous
  Country: US (occurrence: US)
  Receive Date: 20130130
  Receipt Date: 20130130
  Transmission Date: 20140127
  Serious: No
  Sender: FDA-Public Use
  Company Number: US-ASTRAZENECA-2013SE05940

PATIENT
  Age: 54 Year
  Sex: Female
  Weight: 93 kg

DRUGS (6)
  1. NEXIUM [Suspect]
     Indication: GASTROOESOPHAGEAL REFLUX DISEASE
     Route: 048
  2. NEXIUM [Suspect]
     Indication: GASTROOESOPHAGEAL REFLUX DISEASE
     Route: 048
  3. NEXIUM [Suspect]
     Indication: GASTROOESOPHAGEAL REFLUX DISEASE
     Route: 048
  4. GLIMEPIRIDE [Concomitant]
     Indication: DIABETES MELLITUS
     Dates: start: 2009
  5. METFORMIN [Concomitant]
     Indication: DIABETES MELLITUS
     Dates: start: 2009
  6. TRILIPIX [Concomitant]
     Indication: BLOOD CHOLESTEROL ABNORMAL
     Dates: start: 2011

REACTIONS (5)
  - Spinal disorder [Unknown]
  - Osteoporosis [Unknown]
  - Diabetes mellitus [Unknown]
  - Blood cholesterol abnormal [Unknown]
  - Intentional drug misuse [Unknown]
